FAERS Safety Report 7252632-3 (Version None)
Quarter: 2011Q1

REPORT INFORMATION
  Report Type: 
  Country: None (occurrence: None)
  Receive Date: 20110129
  Receipt Date: 20100412
  Transmission Date: 20110831
  Serious: No
  Sender: FDA-Public Use
  Company Number: US-ABBOTT-10P-163-0637622-00

PATIENT
  Sex: Female

DRUGS (1)
  1. HUMIRA [Suspect]
     Indication: PSORIATIC ARTHROPATHY
     Dates: start: 20060101, end: 20091101

REACTIONS (5)
  - ONYCHOCLASIS [None]
  - SKIN ULCER HAEMORRHAGE [None]
  - INSOMNIA [None]
  - SKIN ULCER [None]
  - PSORIASIS [None]
